FAERS Safety Report 24063822 (Version 2)
Quarter: 2024Q3

REPORT INFORMATION
  Report Type: Spontaneous
  Country: DE (occurrence: DE)
  Receive Date: 20240709
  Receipt Date: 20240726
  Transmission Date: 20241017
  Serious: Yes (Hospitalization)
  Sender: TEVA
  Company Number: DE-TEVA-VS-3215298

PATIENT
  Age: 53 Year
  Sex: Male

DRUGS (3)
  1. ITRACONAZOLE [Suspect]
     Active Substance: ITRACONAZOLE
     Indication: Superinfection fungal
     Dosage: FOR 9 DAYS
     Route: 065
  2. ZINC [Suspect]
     Active Substance: ZINC
     Indication: Superinfection fungal
     Route: 065
  3. NYSTATIN [Suspect]
     Active Substance: NYSTATIN
     Indication: Superinfection fungal
     Route: 061

REACTIONS (2)
  - Symmetrical drug-related intertriginous and flexural exanthema [Recovered/Resolved]
  - Drug ineffective [Unknown]
